FAERS Safety Report 7238732-2 (Version None)
Quarter: 2011Q1

REPORT INFORMATION
  Report Type: 
  Country: None (occurrence: None)
  Receive Date: 20110119
  Receipt Date: 20110119
  Transmission Date: 20110831
  Serious: Yes (Hospitalization)
  Sender: FDA-Public Use
  Company Number: None

PATIENT
  Sex: Male
  Weight: 87.3 kg

DRUGS (4)
  1. METHOTREXATE [Suspect]
     Dosage: 55 MG
  2. VINCRISTINE SULFATE [Suspect]
     Dosage: 2 MG
  3. MERCAPTOPURINE [Suspect]
     Dosage: 2200 MG
  4. DEXAMETHASONE [Suspect]
     Dosage: 60 MG

REACTIONS (8)
  - SINUSITIS FUNGAL [None]
  - CEREBRAL FUNGAL INFECTION [None]
  - ASPERGILLOSIS [None]
  - ZYGOMYCOSIS [None]
  - NEUTROPENIC SEPSIS [None]
  - SUBDURAL HAEMATOMA [None]
  - PNEUMONIA [None]
  - HEADACHE [None]
